FAERS Safety Report 8532656 (Version 2)
Quarter: 2013Q1

REPORT INFORMATION
  Report Type: Report from Study
  Country: IT (occurrence: IT)
  Receive Date: 20120426
  Receipt Date: 20130121
  Transmission Date: 20140127
  Serious: Yes (Other)
  Sender: FDA-Public Use
  Company Number: IT-ABBOTT-11P-083-0852076-01

PATIENT
  Age: 25 Year
  Sex: Male

DRUGS (5)
  1. HUMIRA [Suspect]
     Indication: CROHN^S DISEASE
     Route: 058
     Dates: start: 20090907, end: 20090907
  2. HUMIRA [Suspect]
     Route: 058
  3. HUMIRA [Suspect]
     Route: 058
     Dates: end: 20100603
  4. AZATHIOPRINE [Concomitant]
     Indication: ROUTINE HEALTH MAINTENANCE
     Dates: start: 20020901
  5. METHOTREXATE [Concomitant]
     Indication: CROHN^S DISEASE
     Dates: start: 20100923

REACTIONS (1)
  - Colon cancer [Recovered/Resolved]
